FAERS Safety Report 6521291-7 (Version None)
Quarter: 2009Q4

REPORT INFORMATION
  Report Type: 
  Country: None (occurrence: None)
  Receive Date: 20091230
  Receipt Date: 20091216
  Transmission Date: 20100525
  Serious: Yes (Disabling)
  Sender: FDA-Public Use
  Company Number: CA-BAYER-200931048NA

PATIENT
  Age: 44 Year
  Sex: Female
  Weight: 68 kg

DRUGS (8)
  1. BETASERON [Suspect]
     Indication: SECONDARY PROGRESSIVE MULTIPLE SCLEROSIS
     Dosage: TOTAL DAILY DOSE: 4 MIU
     Route: 058
     Dates: start: 20090808
  2. BETASERON [Suspect]
     Dosage: TOTAL DAILY DOSE: 8 MIU
     Route: 058
  3. WELLBUTRIN [Concomitant]
     Indication: ANTIDEPRESSANT THERAPY
     Route: 048
  4. AMANTADINE HCL [Concomitant]
     Indication: MUSCLE RELAXANT THERAPY
     Route: 048
  5. APO-DIVALPROEX [Concomitant]
  6. VITAMIN D [Concomitant]
     Indication: VITAMIN SUPPLEMENTATION
     Route: 048
  7. ZOPICLONE [Concomitant]
     Indication: SEDATIVE THERAPY
     Dosage: 1/2 TAB
     Route: 048
  8. TYLENOL (CAPLET) [Concomitant]
     Indication: PREMEDICATION

REACTIONS (11)
  - EPISTAXIS [None]
  - HEMIPLEGIA [None]
  - HYPOAESTHESIA [None]
  - INJECTION SITE PAIN [None]
  - INJECTION SITE RASH [None]
  - INJURY ASSOCIATED WITH DEVICE [None]
  - MOTOR DYSFUNCTION [None]
  - MULTIPLE SCLEROSIS [None]
  - MULTIPLE SCLEROSIS RELAPSE [None]
  - PAIN [None]
  - PRODUCT QUALITY ISSUE [None]
